FAERS Safety Report 16738162 (Version 2)
Quarter: 2019Q4

REPORT INFORMATION
  Report Type: Spontaneous
  Country: US (occurrence: US)
  Receive Date: 20190824
  Receipt Date: 20191031
  Transmission Date: 20200122
  Serious: Yes (Other)
  Sender: FDA-Public Use
  Company Number: US-009507513-1908USA006181

PATIENT
  Age: 12 Year
  Sex: Female

DRUGS (6)
  1. TEMODAR [Suspect]
     Active Substance: TEMOZOLOMIDE
     Indication: NEUROFIBROMATOSIS
  2. VINCRISTINE [Concomitant]
     Active Substance: VINCRISTINE
     Indication: NEUROFIBROMATOSIS
  3. TEMODAR [Suspect]
     Active Substance: TEMOZOLOMIDE
     Indication: OPTIC GLIOMA
     Dosage: UNK
     Route: 048
     Dates: start: 20090320, end: 20100825
  4. VINCRISTINE [Concomitant]
     Active Substance: VINCRISTINE
     Indication: OPTIC GLIOMA
     Dosage: UNK
     Dates: start: 20090320, end: 20100825
  5. CARBOPLATIN. [Concomitant]
     Active Substance: CARBOPLATIN
     Indication: OPTIC GLIOMA
     Dosage: UNK
     Dates: start: 20090320, end: 20100825
  6. CARBOPLATIN. [Concomitant]
     Active Substance: CARBOPLATIN
     Indication: NEUROFIBROMATOSIS

REACTIONS (2)
  - Product use in unapproved indication [Unknown]
  - Optic glioma [Unknown]

NARRATIVE: CASE EVENT DATE: 20090320
